FAERS Safety Report 24258995 (Version 1)
Quarter: 2024Q3

REPORT INFORMATION
  Report Type: Spontaneous
  Country: US (occurrence: None)
  Receive Date: 20240827
  Receipt Date: 20240827
  Transmission Date: 20241017
  Serious: Yes (Other)
  Sender: Public
  Company Number: None

PATIENT
  Age: 40 Year
  Sex: Male
  Weight: 100.35 kg

DRUGS (4)
  1. ARIPIPRAZOLE [Suspect]
     Active Substance: ARIPIPRAZOLE
     Indication: Bipolar disorder
     Dosage: FREQUENCY : AT BEDTIME;?
     Route: 048
     Dates: start: 20240827
  2. SERTRALINE [Concomitant]
     Active Substance: SERTRALINE HYDROCHLORIDE
  3. BREO ELLIPTA [Concomitant]
     Active Substance: FLUTICASONE FUROATE\VILANTEROL TRIFENATATE
  4. ATORVASTATIN [Concomitant]
     Active Substance: ATORVASTATIN

REACTIONS (3)
  - Seizure [None]
  - Fall [None]
  - Head injury [None]

NARRATIVE: CASE EVENT DATE: 20240827
